FAERS Safety Report 6750543-0 (Version None)
Quarter: 2010Q2

REPORT INFORMATION
  Report Type: 
  Country: None (occurrence: None)
  Receive Date: 20100528
  Receipt Date: 20100528
  Transmission Date: 20101027
  Serious: No
  Sender: FDA-Public Use
  Company Number: None

PATIENT
  Age: 9 Month
  Sex: Male
  Weight: 5.4432 kg

DRUGS (1)
  1. TOPAMAX [Suspect]
     Indication: CONVULSION
     Dates: start: 20060216, end: 20080524

REACTIONS (2)
  - AMNESIA [None]
  - SPEECH DISORDER [None]
